APPROVED DRUG PRODUCT: RUFINAMIDE
Active Ingredient: RUFINAMIDE
Strength: 40MG/ML
Dosage Form/Route: SUSPENSION;ORAL
Application: A211388 | Product #001 | TE Code: AB
Applicant: BIONPHARMA INC
Approved: Apr 23, 2019 | RLD: No | RS: No | Type: RX